FAERS Safety Report 9220655 (Version 2)
Quarter: 2013Q2

REPORT INFORMATION
  Report Type: Report from Study
  Country: US (occurrence: US)
  Receive Date: 20130409
  Receipt Date: 20130531
  Transmission Date: 20140414
  Serious: Yes (Hospitalization)
  Sender: FDA-Public Use
  Company Number: US-ACTELION-A-US2013-81732

PATIENT
  Age: 63 Year
  Sex: Male

DRUGS (1)
  1. TRACLEER [Suspect]
     Indication: PULMONARY ARTERIAL HYPERTENSION
     Dosage: UNK
     Route: 048

REACTIONS (5)
  - Colonoscopy [Unknown]
  - Haemorrhoidal haemorrhage [Unknown]
  - Haemorrhoids [Unknown]
  - Back pain [Unknown]
  - Dyspnoea [Unknown]
